FAERS Safety Report 6816126-9 (Version None)
Quarter: 2010Q3

REPORT INFORMATION
  Report Type: 
  Country: None (occurrence: None)
  Receive Date: 20100702
  Receipt Date: 20100702
  Transmission Date: 20110219
  Serious: No
  Sender: FDA-Public Use
  Company Number: None

PATIENT
  Age: 32 Year
  Sex: Female
  Weight: 131.5431 kg

DRUGS (1)
  1. MIRENA [Suspect]
     Indication: CONTRACEPTION
     Dosage: IUD ONCE INTRACERVICAL
     Route: 019
     Dates: start: 20081014, end: 20100701

REACTIONS (9)
  - ACNE [None]
  - AGGRESSION [None]
  - ANXIETY [None]
  - DEPRESSION [None]
  - HEADACHE [None]
  - LIBIDO DECREASED [None]
  - MOOD SWINGS [None]
  - MYALGIA [None]
  - WEIGHT INCREASED [None]
